FAERS Safety Report 8601401-8 (Version None)
Quarter: 2012Q3

REPORT INFORMATION
  Report Type: 
  Country: None (occurrence: None)
  Receive Date: 20120806
  Receipt Date: 20120723
  Transmission Date: 20120928
  Serious: Yes (Hospitalization, Other)
  Sender: FDA-Public Use
  Company Number: 2012P1017318

PATIENT
  Age: 70 Year
  Sex: Male
  Weight: 83.9154 kg

DRUGS (8)
  1. ASPIRIN [Concomitant]
  2. PRINIVIL [Concomitant]
  3. CEPHALEXIN [Suspect]
     Indication: SKIN LESION
     Dosage: 500 MG, TID
     Dates: start: 20120101, end: 20120101
  4. AMOXICILLIN [Suspect]
     Indication: TOOTH ABSCESS
     Dosage: 1 CAPSULE, BID, PO
     Route: 048
     Dates: start: 20090101, end: 20090101
  5. VITAMIN B COMPLEX CAP [Concomitant]
  6. TOPROL-XL [Concomitant]
  7. CO Q 10 [Concomitant]
  8. FISH OIL [Concomitant]

REACTIONS (17)
  - CARDIAC FAILURE CONGESTIVE [None]
  - CONSTIPATION [None]
  - MALAISE [None]
  - EJECTION FRACTION DECREASED [None]
  - HYPERTENSION [None]
  - OEDEMA PERIPHERAL [None]
  - ASCITES [None]
  - ORTHOPNOEA [None]
  - DIARRHOEA [None]
  - PLEURAL EFFUSION [None]
  - DYSPNOEA [None]
  - ASTHENIA [None]
  - ABDOMINAL PAIN UPPER [None]
  - ABDOMINAL DISTENSION [None]
  - SYSTOLIC DYSFUNCTION [None]
  - CARDIOMYOPATHY [None]
  - NORMOCHROMIC NORMOCYTIC ANAEMIA [None]
